FAERS Safety Report 11605134 (Version 1)
Quarter: 2015Q4

REPORT INFORMATION
  Report Type: Spontaneous
  Country: US (occurrence: US)
  Receive Date: 20151007
  Receipt Date: 20151007
  Transmission Date: 20160304
  Serious: Yes (Other)
  Sender: FDA-Public Use
  Company Number: US-PFIZER INC-2015321081

PATIENT
  Age: 31 Year
  Sex: Female

DRUGS (1)
  1. CRIZOTINIB [Suspect]
     Active Substance: CRIZOTINIB
     Dosage: UNK

REACTIONS (5)
  - Peripheral swelling [Unknown]
  - Visual impairment [Unknown]
  - Dysgeusia [Unknown]
  - Gait disturbance [Unknown]
  - Nausea [Unknown]
